FAERS Safety Report 9507071 (Version 1)
Quarter: 2013Q3

REPORT INFORMATION
  Report Type: Spontaneous
  Country: GB (occurrence: None)
  Receive Date: 20130904
  Receipt Date: 20130904
  Transmission Date: 20140515
  Serious: Yes (Other)
  Sender: FDA-Public Use
  Company Number: 2013P1019026

PATIENT
  Age: 49 Year
  Sex: Male

DRUGS (2)
  1. ALFUZOSIN [Suspect]
     Indication: URINE FLOW DECREASED
     Route: 048
     Dates: start: 200902, end: 201009
  2. BISOPROLOL FUMARATE [Concomitant]

REACTIONS (4)
  - Ejaculation disorder [None]
  - Infertility male [None]
  - Infertility [None]
  - Retrograde ejaculation [None]
